FAERS Safety Report 5774661-9 (Version None)
Quarter: 2008Q2

REPORT INFORMATION
  Report Type: 
  Country: None (occurrence: None)
  Receive Date: 20080617
  Receipt Date: 20080610
  Transmission Date: 20081010
  Serious: Yes (Other)
  Sender: FDA-Public Use
  Company Number: JP-RANBAXY-2008RR-15817

PATIENT

DRUGS (1)
  1. MINOCYCLINE HCL [Suspect]
     Indication: PUSTULAR PSORIASIS

REACTIONS (1)
  - VASCULITIS [None]
